FAERS Safety Report 22610205 (Version 1)
Quarter: 2023Q2

REPORT INFORMATION
  Report Type: Other
  Country: None (occurrence: US)
  Receive Date: 20230616
  Receipt Date: 20230616
  Transmission Date: 20230721
  Serious: Yes (Other)
  Sender: FDA-Public Use
  Company Number: US-Knight Therapeutics (USA) Inc.-2142782

PATIENT
  Age: 38 Year
  Sex: Male

DRUGS (4)
  1. IMPAVIDO [Suspect]
     Active Substance: MILTEFOSINE
     Indication: Cutaneous leishmaniasis
     Route: 065
  2. AMPHOTERICIN B [Concomitant]
     Active Substance: AMPHOTERICIN B
  3. DOLUTEGRAVIR [Concomitant]
     Active Substance: DOLUTEGRAVIR
  4. EMTRICITABINE\TENOFOVIR [Concomitant]
     Active Substance: EMTRICITABINE\TENOFOVIR

REACTIONS (3)
  - Keratouveitis [Recovered/Resolved]
  - Disease recurrence [Unknown]
  - Off label use [Unknown]
